FAERS Safety Report 22187015 (Version 1)
Quarter: 2023Q2

REPORT INFORMATION
  Report Type: Spontaneous
  Country: US (occurrence: US)
  Receive Date: 20230407
  Receipt Date: 20230407
  Transmission Date: 20230722
  Serious: Yes (Other)
  Sender: FDA-Public Use
  Company Number: US-APIL-2310590US

PATIENT
  Sex: Female

DRUGS (5)
  1. FLUOROMETHOLONE [Suspect]
     Active Substance: FLUOROMETHOLONE
     Indication: Hypersensitivity
     Dosage: UNK
     Dates: start: 202211
  2. FLUOROMETHOLONE [Suspect]
     Active Substance: FLUOROMETHOLONE
     Indication: Hypersensitivity
     Dosage: TWO DROPS LEFT EYE AND ONE DROP RIGHT EYE
     Dates: start: 202301
  3. FLUOROMETHOLONE [Suspect]
     Active Substance: FLUOROMETHOLONE
  4. SIGNATURE CARE [Suspect]
     Active Substance: CASTOR OIL
     Indication: Product used for unknown indication
     Dosage: UNK
     Dates: start: 202211
  5. VISINE RED EYE COMFORT [Concomitant]
     Active Substance: TETRAHYDROZOLINE HYDROCHLORIDE
     Dosage: UNK, QD

REACTIONS (9)
  - Suspected counterfeit product [Unknown]
  - Eye irritation [Recovering/Resolving]
  - Eye pain [Recovering/Resolving]
  - Eye discharge [Recovering/Resolving]
  - Eye infection [Recovering/Resolving]
  - Ocular hyperaemia [Recovering/Resolving]
  - Inappropriate schedule of product administration [Unknown]
  - Therapeutic product effect variable [Unknown]
  - Therapy cessation [Unknown]
